FAERS Safety Report 18855483 (Version 5)
Quarter: 2021Q2

REPORT INFORMATION
  Report Type: Report from Study
  Country: US (occurrence: US)
  Receive Date: 20210206
  Receipt Date: 20210611
  Transmission Date: 20210717
  Serious: Yes (Hospitalization)
  Sender: FDA-Public Use
  Company Number: US-ROCHE-2755804

PATIENT
  Age: 75 Year
  Sex: Male
  Weight: 93.7 kg

DRUGS (25)
  1. ATEZOLIZUMAB. [Suspect]
     Active Substance: ATEZOLIZUMAB
     Indication: HORMONE-REFRACTORY PROSTATE CANCER
     Dosage: 11/DEC/2020, PATIENT RECEIVED MOST RECENT DOSE OF ATEZOLIZUMAB PRIOR TO EVENT?ONSET
     Route: 041
     Dates: start: 20200518
  2. XL184 [Suspect]
     Active Substance: CABOZANTINIB
     Indication: HORMONE-REFRACTORY PROSTATE CANCER
     Dosage: 14/DEC/2020, RECEIVED MOST RECENT DOSE OF CABOZANTINIB PRIOR TO EVENT ONSET, THERAPY DURATION: 6 MON
     Route: 048
     Dates: start: 20200518, end: 20201215
  3. AMLODIPINE BESILATE [Concomitant]
     Active Substance: AMLODIPINE BESYLATE
  4. NEULASTA [Concomitant]
     Active Substance: PEGFILGRASTIM
  5. VITAMIN D [ERGOCALCIFEROL] [Concomitant]
     Active Substance: ERGOCALCIFEROL
  6. FLUTICASONE PROPIONATE. [Concomitant]
     Active Substance: FLUTICASONE PROPIONATE
  7. ZOFRAN [Concomitant]
     Active Substance: ONDANSETRON HYDROCHLORIDE
  8. IMODIUM [Concomitant]
     Active Substance: LOPERAMIDE HYDROCHLORIDE
  9. MIRALAX [Concomitant]
     Active Substance: POLYETHYLENE GLYCOL 3350
  10. FLOMAX [Concomitant]
     Active Substance: TAMSULOSIN HYDROCHLORIDE
  11. ATORVASTATIN CALCIUM. [Concomitant]
     Active Substance: ATORVASTATIN CALCIUM
  12. METFORMIN HYDROCHLORIDE. [Concomitant]
     Active Substance: METFORMIN HYDROCHLORIDE
  13. STOOL SOFTENER (DOCUSATE) [Concomitant]
     Active Substance: DOCUSATE
  14. IBUPROFEN. [Concomitant]
     Active Substance: IBUPROFEN
  15. XARELTO [Concomitant]
     Active Substance: RIVAROXABAN
  16. ZITHROMAX [Concomitant]
     Active Substance: AZITHROMYCIN DIHYDRATE
  17. LOSARTAN POTASSIUM. [Concomitant]
     Active Substance: LOSARTAN POTASSIUM
  18. FAMOTIDINE. [Concomitant]
     Active Substance: FAMOTIDINE
  19. PROLIA [Concomitant]
     Active Substance: DENOSUMAB
  20. TUMS [Concomitant]
     Active Substance: CALCIUM CARBONATE
  21. LUPRON [Concomitant]
     Active Substance: LEUPROLIDE ACETATE
  22. LOVENOX [Concomitant]
     Active Substance: ENOXAPARIN SODIUM
  23. PANTOPRAZOLE SODIUM SESQUIHYDRATE [Concomitant]
     Active Substance: PANTOPRAZOLE SODIUM
  24. LEVAQUIN [Concomitant]
     Active Substance: LEVOFLOXACIN
  25. METAMUCIL [Concomitant]
     Active Substance: PLANTAGO SEED

REACTIONS (4)
  - Atrial fibrillation [Not Recovered/Not Resolved]
  - Pericardial effusion [Not Recovered/Not Resolved]
  - Pleural effusion [Unknown]
  - Acute respiratory failure [Unknown]

NARRATIVE: CASE EVENT DATE: 20201222
